FAERS Safety Report 4432240-X (Version None)
Quarter: 2004Q3

REPORT INFORMATION
  Report Type: 
  Country: None (occurrence: None)
  Receive Date: 20040819
  Receipt Date: 20040804
  Transmission Date: 20050211
  Serious: Yes (Death, Life-Threatening, Hospitalization)
  Sender: FDA-Public Use
  Company Number: 2004-BP-05423BP

PATIENT
  Age: 62 Year
  Sex: Female
  Weight: 42.2 kg

DRUGS (11)
  1. SPIRIVA [Suspect]
     Dosage: 18 MCG (18 MCG), IH
     Route: 055
     Dates: start: 20040621, end: 20040625
  2. EFFEXOR XR [Concomitant]
  3. KCL (POTASSIUM CHLORIDE) [Concomitant]
  4. ACETYLSALICYLIC ACID SRT [Concomitant]
  5. PRAVACHOL (PRACASTATIN SODIUM) [Concomitant]
  6. LASIX (LASIC [Concomitant]
  7. ADVAIR (SERETIDE MITE) [Concomitant]
  8. XOPENEX [Concomitant]
  9. OXYGEN (OXYGEN) [Concomitant]
  10. BISOPROLOL FUMARATE [Concomitant]
  11. ALBUTEROL [Concomitant]

REACTIONS (5)
  - EJECTION FRACTION DECREASED [None]
  - GENERAL PHYSICAL HEALTH DETERIORATION [None]
  - ISCHAEMIC CARDIOMYOPATHY [None]
  - RESPIRATORY FAILURE [None]
  - WEIGHT DECREASED [None]
